FAERS Safety Report 8337027-3 (Version None)
Quarter: 2012Q2

REPORT INFORMATION
  Report Type: 
  Country: None (occurrence: None)
  Receive Date: 20120504
  Receipt Date: 20110616
  Transmission Date: 20120825
  Serious: No
  Sender: FDA-Public Use
  Company Number: US-TEVA-2011003113

PATIENT
  Sex: Female
  Weight: 62.198 kg

DRUGS (3)
  1. RESTASIS [Concomitant]
     Dates: start: 20060101
  2. NUVIGIL [Suspect]
     Indication: NARCOLEPSY
     Dosage: 150 MILLIGRAM;
     Route: 048
     Dates: start: 20110522, end: 20110614
  3. EVOXAC [Concomitant]
     Dates: start: 20060101

REACTIONS (6)
  - EMOTIONAL DISORDER [None]
  - IMPATIENCE [None]
  - DIARRHOEA [None]
  - FEELING ABNORMAL [None]
  - NAUSEA [None]
  - PRURITUS GENERALISED [None]
